FAERS Safety Report 13439939 (Version 2)
Quarter: 2017Q2

REPORT INFORMATION
  Report Type: Spontaneous
  Country: US (occurrence: US)
  Receive Date: 20170413
  Receipt Date: 20170504
  Transmission Date: 20170830
  Serious: No
  Sender: FDA-Public Use
  Company Number: US-BAYER-2017-071258

PATIENT
  Age: 60 Year
  Sex: Female

DRUGS (1)
  1. CLIMARA [Suspect]
     Active Substance: ESTRADIOL
     Dosage: 0.1 MG, UNK
     Route: 062

REACTIONS (6)
  - Application site pruritus [Not Recovered/Not Resolved]
  - Application site rash [Not Recovered/Not Resolved]
  - Application site erythema [Not Recovered/Not Resolved]
  - Application site swelling [None]
  - Application site urticaria [Not Recovered/Not Resolved]
  - Application site hypersensitivity [Not Recovered/Not Resolved]

NARRATIVE: CASE EVENT DATE: 201702
